FAERS Safety Report 25861200 (Version 1)
Quarter: 2025Q3

REPORT INFORMATION
  Report Type: Spontaneous
  Country: BA (occurrence: BA)
  Receive Date: 20250929
  Receipt Date: 20250929
  Transmission Date: 20251020
  Serious: Yes (Other)
  Sender: VERTEX
  Company Number: BA-VERTEX PHARMACEUTICALS-2025-016185

PATIENT
  Sex: Male

DRUGS (2)
  1. ELEXACAFTOR\IVACAFTOR\TEZACAFTOR [Suspect]
     Active Substance: ELEXACAFTOR\IVACAFTOR\TEZACAFTOR
     Indication: Cystic fibrosis
     Route: 048
  2. KALYDECO [Suspect]
     Active Substance: IVACAFTOR
     Indication: Cystic fibrosis
     Route: 048

REACTIONS (4)
  - Transplant rejection [Not Recovered/Not Resolved]
  - Liver transplant [Unknown]
  - Transaminases increased [Recovered/Resolved]
  - Bile duct stenosis [Unknown]
